FAERS Safety Report 9725481 (Version 1)
Quarter: 2013Q4

REPORT INFORMATION
  Report Type: Spontaneous
  Country: US (occurrence: None)
  Receive Date: 20131127
  Receipt Date: 20131127
  Transmission Date: 20140711
  Serious: Yes (Hospitalization)
  Sender: FDA-Public Use
  Company Number: 13-04860

PATIENT
  Age: 54 Year
  Sex: Female

DRUGS (24)
  1. ALBUTEROL SULFATE [Suspect]
     Indication: CHRONIC OBSTRUCTIVE PULMONARY DISEASE
     Dosage: 1 VIAL Q4 PRN 054
     Dates: start: 20131024, end: 20131107
  2. ALBUTEROL SULFATE [Suspect]
     Indication: EMPHYSEMA
     Dosage: 1 VIAL Q4 PRN 054
     Dates: start: 20131024, end: 20131107
  3. ALBUTEROL SULFATE [Suspect]
     Indication: ASTHMA
     Dosage: 1 VIAL Q4 PRN 054
     Dates: start: 20131024, end: 20131107
  4. CRESTOR (ROSUVASTATIN) [Concomitant]
  5. DEXILANT [Concomitant]
  6. FLEXERIL [Concomitant]
  7. FLONASE [Concomitant]
  8. LORTAB [Concomitant]
  9. LANTUS SOLOSTAR (INSULIN GLARGINE) [Concomitant]
  10. NYSTATIN [Concomitant]
  11. ADVAIR DISKUS [Concomitant]
  12. NYSTATIN [Concomitant]
  13. VENTOLIN HFA [Concomitant]
  14. SINGULAIR (MONTELUKAST) 10MG [Concomitant]
  15. VALIUM (DIAZEPAM) [Concomitant]
  16. JANUVIA [Concomitant]
  17. METFORMIN [Concomitant]
  18. NITROSTAT [Concomitant]
  19. NORVASC [Concomitant]
  20. PHENERGAN (PROMETHAZINE) [Concomitant]
  21. COZAAR [Concomitant]
  22. HYOSCYAMINE [Concomitant]
  23. DIPHENOXYLATE/ATROPINE [Concomitant]
  24. ENTOCORT [Concomitant]

REACTIONS (2)
  - Pneumonia [None]
  - Product quality issue [None]
